FAERS Safety Report 10274660 (Version 2)
Quarter: 2014Q3

REPORT INFORMATION
  Report Type: Spontaneous
  Country: US (occurrence: US)
  Receive Date: 20140702
  Receipt Date: 20140917
  Transmission Date: 20150326
  Serious: No
  Sender: FDA-Public Use
  Company Number: US-009507513-1406USA003107

PATIENT
  Age: 43 Year
  Sex: Male
  Weight: 90.7 kg

DRUGS (1)
  1. MIRALAX [Suspect]
     Active Substance: POLYETHYLENE GLYCOL 3350
     Indication: CONSTIPATION
     Dosage: 17 G, ONCE
     Route: 048
     Dates: start: 20140606, end: 20140607

REACTIONS (1)
  - Vomiting [Recovered/Resolved]

NARRATIVE: CASE EVENT DATE: 20140606
